FAERS Safety Report 11813056 (Version 1)
Quarter: 2015Q4

REPORT INFORMATION
  Report Type: Spontaneous
  Country: CN (occurrence: CN)
  Receive Date: 20151209
  Receipt Date: 20151209
  Transmission Date: 20160305
  Serious: Yes (Hospitalization)
  Sender: FDA-Public Use
  Company Number: CN-ASTRAZENECA-2015SF22434

PATIENT
  Sex: Male
  Weight: 58 kg

DRUGS (4)
  1. CITICOLINE SODIUM [Concomitant]
     Active Substance: CITICOLINE SODIUM
     Indication: CEREBRAL INFARCTION
     Route: 048
     Dates: start: 20150123, end: 20150410
  2. ROSUVASTATIN CALCIUM. [Suspect]
     Active Substance: ROSUVASTATIN CALCIUM
     Indication: CEREBRAL INFARCTION
     Route: 048
     Dates: start: 20150123, end: 20150224
  3. IRBESARTAN. [Concomitant]
     Active Substance: IRBESARTAN
     Indication: CEREBRAL INFARCTION
     Route: 048
     Dates: start: 20150123, end: 20150410
  4. ASPIRIN. [Concomitant]
     Active Substance: ASPIRIN
     Indication: CEREBRAL INFARCTION
     Route: 048
     Dates: start: 20150123, end: 20150410

REACTIONS (1)
  - Hepatocellular injury [Recovered/Resolved]
